FAERS Safety Report 7902122-7 (Version None)
Quarter: 2011Q4

REPORT INFORMATION
  Report Type: 
  Country: None (occurrence: None)
  Receive Date: 20111108
  Receipt Date: 20111027
  Transmission Date: 20120403
  Serious: Yes (Other)
  Sender: FDA-Public Use
  Company Number: US-ASTRAZENECA-2011SE65396

PATIENT
  Sex: Female

DRUGS (3)
  1. NEXIUM [Suspect]
     Route: 048
  2. ADVAIR DISKUS 100/50 [Concomitant]
  3. UNSPECIFIED MEDICATION [Suspect]
     Route: 065

REACTIONS (7)
  - ASTHMA [None]
  - WEIGHT DECREASED [None]
  - BLOOD GLUCOSE DECREASED [None]
  - BLOOD POTASSIUM DECREASED [None]
  - OVERDOSE [None]
  - HAEMATEMESIS [None]
  - DYSPHAGIA [None]
